FAERS Safety Report 19242369 (Version 1)
Quarter: 2021Q2

REPORT INFORMATION
  Report Type: Spontaneous
  Country: GB (occurrence: GB)
  Receive Date: 20210510
  Receipt Date: 20210510
  Transmission Date: 20210717
  Serious: Yes (Death, Hospitalization, Other)
  Sender: FDA-Public Use
  Company Number: GB-ABBVIE-21K-167-3897559-00

PATIENT
  Age: 52 Year
  Sex: Female

DRUGS (3)
  1. HUMIRA [Suspect]
     Active Substance: ADALIMUMAB
     Indication: CROHN^S DISEASE
     Route: 058
     Dates: end: 2019
  2. HUMIRA [Suspect]
     Active Substance: ADALIMUMAB
     Route: 058
     Dates: start: 201911
  3. IMRALDI [Suspect]
     Active Substance: ADALIMUMAB
     Indication: CROHN^S DISEASE
     Route: 058
     Dates: start: 201905, end: 201911

REACTIONS (10)
  - COVID-19 [Fatal]
  - Glaucoma [Unknown]
  - Illness [Unknown]
  - Hepatomegaly [Unknown]
  - Product substitution issue [Unknown]
  - Iritis [Unknown]
  - Respiration abnormal [Unknown]
  - Cholangiocarcinoma [Unknown]
  - Hepatic lesion [Unknown]
  - Renal disorder [Unknown]

NARRATIVE: CASE EVENT DATE: 201909
